FAERS Safety Report 9387879 (Version 2)
Quarter: 2013Q4

REPORT INFORMATION
  Report Type: Spontaneous
  Country: US (occurrence: US)
  Receive Date: 20130708
  Receipt Date: 20131009
  Transmission Date: 20140711
  Serious: Yes (Other)
  Sender: FDA-Public Use
  Company Number: US-BAYER-2013-078665

PATIENT
  Sex: 0

DRUGS (1)
  1. KOGENATE FS [Suspect]

REACTIONS (2)
  - Inhibiting antibodies [None]
  - Device related infection [None]
